FAERS Safety Report 21324194 (Version 1)
Quarter: 2022Q3

REPORT INFORMATION
  Report Type: Spontaneous
  Country: US (occurrence: None)
  Receive Date: 20220911
  Receipt Date: 20220911
  Transmission Date: 20221027
  Serious: No
  Sender: FDA-Public Use
  Company Number: None

PATIENT
  Age: 30 Year
  Sex: Female
  Weight: 53.05 kg

DRUGS (5)
  1. BUPROPION [Suspect]
     Active Substance: BUPROPION
     Indication: Bipolar II disorder
     Dosage: OTHER QUANTITY : 1 TABLET(S);?FREQUENCY : DAILY;?
     Route: 048
  2. LAMOTRIGINE [Concomitant]
     Active Substance: LAMOTRIGINE
  3. MODAFINIL [Concomitant]
     Active Substance: MODAFINIL
  4. NUVARING [Concomitant]
     Active Substance: ETHINYL ESTRADIOL\ETONOGESTREL
  5. WOMENS^ DAILY MULTIVITAMIN [Concomitant]

REACTIONS (4)
  - Product odour abnormal [None]
  - Nausea [None]
  - Poor quality product administered [None]
  - Manufacturing issue [None]

NARRATIVE: CASE EVENT DATE: 20220713
